APPROVED DRUG PRODUCT: IRINOTECAN HYDROCHLORIDE
Active Ingredient: IRINOTECAN HYDROCHLORIDE
Strength: 100MG/5ML (20MG/ML)
Dosage Form/Route: INJECTABLE;INJECTION
Application: A090137 | Product #002
Applicant: SANDOZ INC
Approved: Nov 12, 2009 | RLD: No | RS: No | Type: DISCN